FAERS Safety Report 13342580 (Version 4)
Quarter: 2017Q3

REPORT INFORMATION
  Report Type: Spontaneous
  Country: US (occurrence: US)
  Receive Date: 20170316
  Receipt Date: 20170726
  Transmission Date: 20171127
  Serious: Yes (Congenital Anomaly)
  Sender: FDA-Public Use
  Company Number: US-JNJFOC-20170312769

PATIENT
  Sex: Female

DRUGS (3)
  1. REMICADE [Suspect]
     Active Substance: INFLIXIMAB
     Indication: CROHN^S DISEASE
     Route: 064
     Dates: start: 201601
  2. ADALIMUMAB [Suspect]
     Active Substance: ADALIMUMAB
     Indication: CROHN^S DISEASE
     Dosage: MOTHER^S DOSING (INDUCTION: 160/ 80/ 40 (UNITS UNSPECIFIED))
     Route: 064
  3. REMICADE [Suspect]
     Active Substance: INFLIXIMAB
     Indication: CROHN^S DISEASE
     Dosage: MOTHER^S DOSING
     Route: 064
     Dates: start: 20110112

REACTIONS (4)
  - Foetal exposure during pregnancy [Recovered/Resolved]
  - Exposure during breast feeding [Unknown]
  - Foetal growth restriction [Unknown]
  - Gastroschisis [Unknown]

NARRATIVE: CASE EVENT DATE: 2016
